FAERS Safety Report 14317792 (Version 1)
Quarter: 2017Q4

REPORT INFORMATION
  Report Type: Report from Study
  Country: US (occurrence: US)
  Receive Date: 20171222
  Receipt Date: 20171222
  Transmission Date: 20180321
  Serious: Yes (Other)
  Sender: FDA-Public Use
  Company Number: US-CIPLA LTD.-2017US25355

PATIENT

DRUGS (3)
  1. RILOTUMUMAB [Suspect]
     Active Substance: RILOTUMUMAB
     Indication: SMALL CELL LUNG CANCER EXTENSIVE STAGE
     Dosage: 15 MG/KG, 60-MINUTE INFUSIONS ON DAY 2 OF CYCLE 1 AND ON DAY 1 OF ALL SUBSEQUENT CYCLES
     Route: 042
  2. CARBOPLATIN. [Suspect]
     Active Substance: CARBOPLATIN
     Indication: SMALL CELL LUNG CANCER EXTENSIVE STAGE
     Dosage: 5 MG/ML/MIN OVER 30 MINUTES, ON DAY 1 OF EACH 21-DAY CYCLE
     Route: 042
  3. ETOPOSIDE. [Suspect]
     Active Substance: ETOPOSIDE
     Indication: SMALL CELL LUNG CANCER EXTENSIVE STAGE
     Dosage: 100 MG/M2, ON DAY 1 OF EACH 21-DAY CYCLE
     Route: 042

REACTIONS (1)
  - Embolism venous [Unknown]
